FAERS Safety Report 7166106-1 (Version None)
Quarter: 2010Q4

REPORT INFORMATION
  Report Type: 
  Country: None (occurrence: None)
  Receive Date: 20101216
  Receipt Date: 20101207
  Transmission Date: 20110411
  Serious: No
  Sender: FDA-Public Use
  Company Number: US-JNJFOC-20101203768

PATIENT
  Sex: Female
  Weight: 44 kg

DRUGS (5)
  1. SANDOZ FENTANYL TRANSDERMAL SYSTEM [Suspect]
     Indication: PAIN
     Route: 062
  2. OXYCODONE [Concomitant]
     Indication: BREAKTHROUGH PAIN
     Dosage: 5-325 MG AS NEEDED
     Route: 048
  3. LORAZEPAM [Concomitant]
     Route: 065
  4. LIDODERM [Concomitant]
     Route: 062
  5. UNKNOWN MEDICATION [Concomitant]
     Route: 065

REACTIONS (3)
  - CLAUSTROPHOBIA [None]
  - PRODUCT QUALITY ISSUE [None]
  - WRONG TECHNIQUE IN DRUG USAGE PROCESS [None]
